FAERS Safety Report 9467860 (Version 2)
Quarter: 2013Q3

REPORT INFORMATION
  Report Type: Report from Study
  Country: TW (occurrence: TW)
  Receive Date: 20130821
  Receipt Date: 20130906
  Transmission Date: 20140515
  Serious: Yes (Hospitalization)
  Sender: FDA-Public Use
  Company Number: PHHY2013TW089438

PATIENT
  Age: 62 Year
  Sex: Female

DRUGS (1)
  1. ACLASTA/ZOLEDRONATE [Suspect]
     Indication: OSTEOPOROSIS
     Dosage: 5 MG, UNK
     Route: 042
     Dates: start: 20120719

REACTIONS (3)
  - Thoracic vertebral fracture [Recovering/Resolving]
  - Spinal compression fracture [Recovering/Resolving]
  - Intervertebral disc protrusion [Recovering/Resolving]
